FAERS Safety Report 7096157-7 (Version None)
Quarter: 2010Q4

REPORT INFORMATION
  Report Type: 
  Country: None (occurrence: None)
  Receive Date: 20101103
  Receipt Date: 20101025
  Transmission Date: 20110411
  Serious: Yes (Other)
  Sender: FDA-Public Use
  Company Number: 018835

PATIENT
  Sex: Female
  Weight: 2.1 kg

DRUGS (2)
  1. NEUPRO [Suspect]
     Indication: RESTLESS LEGS SYNDROME
     Dosage: (TRANSPLACENTAL)
     Route: 064
     Dates: start: 20090713, end: 20091203
  2. RIVOTRIL (RIVOTROL) (NOT SPECIFIED) [Suspect]
     Indication: RESTLESS LEGS SYNDROME
     Dosage: (TRANSPLACENTAL)
     Route: 064
     Dates: start: 20091203

REACTIONS (4)
  - ESCHERICHIA INFECTION [None]
  - MATERNAL DRUGS AFFECTING FOETUS [None]
  - MENINGITIS BACTERIAL [None]
  - PREMATURE BABY [None]
